FAERS Safety Report 19366352 (Version 5)
Quarter: 2023Q1

REPORT INFORMATION
  Report Type: Report from Study
  Country: KR (occurrence: KR)
  Receive Date: 20210602
  Receipt Date: 20230227
  Transmission Date: 20230417
  Serious: Yes (Hospitalization, Other)
  Sender: FDA-Public Use
  Company Number: KR-JNJFOC-20210443177

PATIENT
  Age: 72 Year
  Sex: Female
  Weight: 47 kg

DRUGS (32)
  1. AMIVANTAMAB [Suspect]
     Active Substance: AMIVANTAMAB
     Indication: Non-small cell lung cancer
     Dosage: ALSO REPORTED AS 250 ML
     Dates: start: 20210415, end: 20210416
  2. AMIVANTAMAB [Suspect]
     Active Substance: AMIVANTAMAB
     Dates: start: 20210417, end: 20210507
  3. TENELIGLIPTIN [Concomitant]
     Active Substance: TENELIGLIPTIN
     Indication: Diabetes mellitus
     Route: 048
     Dates: start: 2001
  4. GLIMEPIRIDE [Concomitant]
     Active Substance: GLIMEPIRIDE
     Indication: Diabetes mellitus
     Route: 048
     Dates: start: 2001, end: 20210515
  5. GLIMEPIRIDE [Concomitant]
     Active Substance: GLIMEPIRIDE
     Route: 048
     Dates: start: 20210516
  6. METFORMIN HYDROCHLORIDE [Concomitant]
     Active Substance: METFORMIN HYDROCHLORIDE
     Indication: Diabetes mellitus
     Route: 048
     Dates: start: 2001, end: 20210514
  7. METFORMIN HYDROCHLORIDE [Concomitant]
     Active Substance: METFORMIN HYDROCHLORIDE
     Route: 048
     Dates: start: 20210515
  8. RAMIPRIL [Concomitant]
     Active Substance: RAMIPRIL
     Indication: Hypertension
     Route: 048
     Dates: start: 2010
  9. LIPITOR [Concomitant]
     Active Substance: ATORVASTATIN CALCIUM
     Indication: Hyperlipidaemia
     Route: 048
     Dates: start: 20210516, end: 20210624
  10. LIPITOR [Concomitant]
     Active Substance: ATORVASTATIN CALCIUM
     Route: 048
     Dates: start: 20160101, end: 20210515
  11. CILOS XR [Concomitant]
     Indication: Hyperlipidaemia
     Route: 048
     Dates: start: 2016, end: 20210408
  12. CILOS XR [Concomitant]
     Dosage: PLETAAL SR CAP(CILOSTAZOL)
     Route: 048
     Dates: start: 20210516, end: 20210517
  13. GINEXIN-F [Concomitant]
     Indication: Tinnitus
     Route: 048
     Dates: start: 2019, end: 20210413
  14. GLITINLID [Concomitant]
     Indication: Tinnitus
     Route: 048
     Dates: start: 2019, end: 20210413
  15. ERBERT [Concomitant]
     Indication: Tinnitus
     Route: 048
     Dates: start: 2019, end: 20210413
  16. HERBALS [Concomitant]
     Active Substance: HERBALS
     Indication: Gastrointestinal disorder therapy
     Route: 048
     Dates: start: 2019, end: 20210420
  17. ULTRACET ER SEMI [Concomitant]
     Indication: Pleuritic pain
     Dosage: 325/37.5
     Route: 048
     Dates: start: 20210331
  18. RAMOSETRON HYDROCHLORIDE [Concomitant]
     Active Substance: RAMOSETRON HYDROCHLORIDE
     Indication: Diarrhoea
     Route: 048
     Dates: start: 20210401, end: 20210413
  19. OXYGEN [Concomitant]
     Active Substance: OXYGEN
     Indication: Infusion related reaction
     Route: 050
     Dates: start: 20210415, end: 20210417
  20. CILOSTAZOL [Concomitant]
     Active Substance: CILOSTAZOL
     Indication: Hyperlipidaemia
     Route: 048
     Dates: start: 20210415, end: 20210415
  21. OXYGEN [Concomitant]
     Active Substance: OXYGEN
     Indication: Infusion related reaction
     Route: 050
     Dates: start: 20210415, end: 20210415
  22. MINOCYCLINE HYDROCHLORIDE [Concomitant]
     Active Substance: MINOCYCLINE HYDROCHLORIDE
     Indication: Prophylaxis
     Route: 048
     Dates: start: 20210415, end: 20210415
  23. MUPIROCIN [Concomitant]
     Active Substance: MUPIROCIN
     Indication: Infusion related reaction
     Dosage: ALSO  REPORTED 1 MG
     Route: 061
     Dates: start: 20210415, end: 20210415
  24. MEGESTROL ACETATE [Concomitant]
     Active Substance: MEGESTROL ACETATE
     Indication: Decreased appetite
     Route: 048
     Dates: start: 20210421, end: 20210602
  25. PENIRAMIN [Concomitant]
     Indication: Infusion related reaction
     Route: 042
     Dates: start: 20210415, end: 20210415
  26. PENIRAMIN [Concomitant]
     Indication: Prophylaxis
     Route: 042
     Dates: start: 20210516, end: 20210516
  27. LACTULOSE [Concomitant]
     Active Substance: LACTULOSE
     Indication: Constipation prophylaxis
     Route: 048
     Dates: start: 20210515, end: 20210609
  28. MAGNESIUM OXIDE [Concomitant]
     Active Substance: MAGNESIUM OXIDE
     Indication: Constipation prophylaxis
     Route: 048
     Dates: start: 20210516, end: 20210517
  29. CEPHRADINE [Concomitant]
     Active Substance: CEPHRADINE
     Indication: Cellulitis
     Route: 048
     Dates: start: 20210524, end: 20210707
  30. CEFAZOLIN [Concomitant]
     Active Substance: CEFAZOLIN
     Indication: Cellulitis
     Route: 042
     Dates: start: 20210518, end: 20210524
  31. CECLOR [Concomitant]
     Active Substance: CEFACLOR
     Indication: Prophylaxis
     Route: 048
     Dates: start: 20210513, end: 20210514
  32. DEXTROSE\SODIUM CHLORIDE [Concomitant]
     Active Substance: DEXTROSE\SODIUM CHLORIDE
     Indication: Prophylaxis
     Route: 042
     Dates: start: 20210514, end: 20210514

REACTIONS (3)
  - Fatigue [Recovered/Resolved]
  - Deep vein thrombosis [Recovering/Resolving]
  - Pneumothorax [Recovered/Resolved]

NARRATIVE: CASE EVENT DATE: 20210421
